FAERS Safety Report 16795053 (Version 1)
Quarter: 2019Q4

REPORT INFORMATION
  Report Type: Spontaneous
  Country: US (occurrence: US)
  Receive Date: 20190910
  Receipt Date: 20190910
  Transmission Date: 20200122
  Serious: Yes (Disabling)
  Sender: FDA-Public Use
  Company Number: None

PATIENT
  Age: 35 Year
  Sex: Female
  Weight: 98 kg

DRUGS (1)
  1. INJECTAFER [Suspect]
     Active Substance: FERRIC CARBOXYMALTOSE
     Indication: ANAEMIA
     Dosage: ?          QUANTITY:1 VIAL;OTHER FREQUENCY:2 DOSES 7 DAYS APA;?
     Route: 042
     Dates: start: 20190826, end: 20190903

REACTIONS (5)
  - Asthenia [None]
  - Pain [None]
  - Vomiting [None]
  - Blood phosphorus decreased [None]
  - Confusional state [None]

NARRATIVE: CASE EVENT DATE: 20190826
